FAERS Safety Report 9692634 (Version 2)
Quarter: 2013Q4

REPORT INFORMATION
  Report Type: Spontaneous
  Country: US (occurrence: US)
  Receive Date: 20131118
  Receipt Date: 20131231
  Transmission Date: 20140711
  Serious: Yes (Other)
  Sender: FDA-Public Use
  Company Number: PHEH2013US023865

PATIENT
  Sex: Female

DRUGS (1)
  1. RITALIN-SR [Suspect]
     Dosage: UNK UKN, UNK

REACTIONS (12)
  - Amnesia [Unknown]
  - Arrhythmia [Unknown]
  - Cognitive disorder [Unknown]
  - Nervous system disorder [Unknown]
  - Tinnitus [Unknown]
  - Miosis [Unknown]
  - Feeling abnormal [Unknown]
  - Emotional disorder [Unknown]
  - Lethargy [Unknown]
  - Apathy [Unknown]
  - Bradycardia [Unknown]
  - Drug ineffective [Unknown]
